FAERS Safety Report 9235572 (Version 1)
Quarter: 2013Q1

REPORT INFORMATION
  Report Type: Spontaneous
  Country: US (occurrence: None)
  Receive Date: 20121031
  Receipt Date: 20121031
  Transmission Date: 20140127
  Serious: Yes (Other)
  Sender: FDA-Public Use
  Company Number: PHEH2012US015060

PATIENT
  Age: 41 Year
  Sex: Female
  Weight: 73.5 kg

DRUGS (3)
  1. GILENYA [Suspect]
     Indication: MULTIPLE SCLEROSIS
     Dates: start: 20111130, end: 201206
  2. RITALIN (METHYLPHENIDATE HYDROCHLORIDE) [Concomitant]
  3. TOPAMAX (TOPIRAMATE) [Concomitant]

REACTIONS (7)
  - Hepatic enzyme increased [None]
  - Blood bilirubin increased [None]
  - Chromaturia [None]
  - Faeces pale [None]
  - Liver disorder [None]
  - Aspartate aminotransferase increased [None]
  - Alanine aminotransferase increased [None]
